FAERS Safety Report 5389060-1 (Version None)
Quarter: 2007Q3

REPORT INFORMATION
  Report Type: 
  Country: None (occurrence: None)
  Receive Date: 20070713
  Receipt Date: 20070702
  Transmission Date: 20080115
  Serious: Yes (Death, Hospitalization)
  Sender: FDA-Public Use
  Company Number: 015867

PATIENT
  Age: 41 Year
  Sex: Male

DRUGS (1)
  1. METHYLPREDNISOLONE [Suspect]
     Indication: SPONDYLITIS
     Dosage: SEE IMAGE
     Route: 008

REACTIONS (20)
  - BLOOD PRESSURE INCREASED [None]
  - BRAIN HERNIATION [None]
  - BRAIN STEM AUDITORY EVOKED RESPONSE ABNORMAL [None]
  - BRAIN STEM INFARCTION [None]
  - COMA [None]
  - CORNEAL LIGHT REFLEX TEST ABNORMAL [None]
  - CSF TEST ABNORMAL [None]
  - DEPRESSED LEVEL OF CONSCIOUSNESS [None]
  - DYSARTHRIA [None]
  - EXTENSOR PLANTAR RESPONSE [None]
  - EYE MOVEMENT DISORDER [None]
  - HEART RATE INCREASED [None]
  - HYDROCEPHALUS [None]
  - HYPOREFLEXIA [None]
  - MUSCULAR WEAKNESS [None]
  - POSTURING [None]
  - PUPILLARY REFLEX IMPAIRED [None]
  - RESPIRATORY ARREST [None]
  - RESPIRATORY RATE INCREASED [None]
  - VESTIBULAR FUNCTION TEST ABNORMAL [None]
